FAERS Safety Report 4459742-4 (Version None)
Quarter: 2004Q3

REPORT INFORMATION
  Report Type: 
  Country: None (occurrence: None)
  Receive Date: 20040923
  Receipt Date: 20040913
  Transmission Date: 20050211
  Serious: Yes (Death, Hospitalization, Other)
  Sender: FDA-Public Use
  Company Number: US-JNJFOC-20040903647

PATIENT
  Age: 5 Month
  Sex: Female

DRUGS (1)
  1. TYLENOL (CAPLET) [Suspect]
     Indication: DRUG USE FOR UNKNOWN INDICATION
     Dosage: 500 MG, 1 IN 4 HOUR, ORAL
     Route: 048

REACTIONS (12)
  - ACIDOSIS [None]
  - ACTIVATED PARTIAL THROMBOPLASTIN TIME PROLONGED [None]
  - ALANINE AMINOTRANSFERASE INCREASED [None]
  - AMMONIA INCREASED [None]
  - ASPARTATE AMINOTRANSFERASE INCREASED [None]
  - CARDIAC FAILURE CONGESTIVE [None]
  - COMA [None]
  - HYPOGLYCAEMIA [None]
  - HYPOTENSION [None]
  - MEDICATION ERROR [None]
  - PROTHROMBIN TIME PROLONGED [None]
  - VENTRICULAR FIBRILLATION [None]
